FAERS Safety Report 5525644-5 (Version None)
Quarter: 2007Q4

REPORT INFORMATION
  Report Type: 
  Country: None (occurrence: None)
  Receive Date: 20071120
  Receipt Date: 20071105
  Transmission Date: 20080405
  Serious: Yes (Death, Hospitalization)
  Sender: FDA-Public Use
  Company Number: 2007US002637

PATIENT
  Age: 54 Year
  Sex: Male

DRUGS (3)
  1. PROGRAF [Suspect]
     Indication: RENAL TRANSPLANT
     Dosage: 4 MG, BID, ORAL
     Route: 048
     Dates: start: 20050316, end: 20050404
  2. MYCOPHENOLATE MOFETIL [Suspect]
     Indication: RENAL TRANSPLANT
     Dosage: 1000 MG, BID, ORAL
     Route: 048
     Dates: start: 20050316, end: 20050404
  3. PREDNISONE [Suspect]
     Indication: RENAL TRANSPLANT
     Dosage: 10 MG, UID/QD, ORAL
     Route: 048
     Dates: start: 20050322

REACTIONS (2)
  - CEREBROVASCULAR ACCIDENT [None]
  - COMA [None]
